FAERS Safety Report 13256723 (Version 1)
Quarter: 2017Q1

REPORT INFORMATION
  Report Type: Spontaneous
  Country: US (occurrence: US)
  Receive Date: 20170215
  Receipt Date: 20170215
  Transmission Date: 20170428
  Serious: No
  Sender: FDA-Public Use
  Company Number: None

PATIENT

DRUGS (1)
  1. PROPARACAINE 0.5% OPHTHALMIC SOLUTION [Suspect]
     Active Substance: PROPARACAINE
     Indication: LOCAL ANAESTHESIA

REACTIONS (3)
  - Product quality issue [None]
  - Eye irritation [None]
  - Drug effect decreased [None]
